FAERS Safety Report 25452464 (Version 3)
Quarter: 2025Q3

REPORT INFORMATION
  Report Type: Spontaneous
  Country: US (occurrence: US)
  Receive Date: 20250618
  Receipt Date: 20250707
  Transmission Date: 20251020
  Serious: No
  Sender: BAUSCH AND LOMB
  Company Number: US-BAUSCHBL-2025BNL010413

PATIENT
  Age: 76 Year
  Sex: Male

DRUGS (1)
  1. XIIDRA [Suspect]
     Active Substance: LIFITEGRAST
     Indication: Dry eye
     Route: 047

REACTIONS (10)
  - Eye irritation [Unknown]
  - Vision blurred [Recovered/Resolved]
  - Lacrimation increased [Not Recovered/Not Resolved]
  - Dysgeusia [Unknown]
  - Product use issue [Unknown]
  - Intentional product use issue [Unknown]
  - Loss of personal independence in daily activities [Unknown]
  - Product after taste [Unknown]
  - Product delivery mechanism issue [Unknown]
  - Product storage error [Unknown]
